FAERS Safety Report 6198357-7 (Version None)
Quarter: 2009Q2

REPORT INFORMATION
  Report Type: 
  Country: None (occurrence: None)
  Receive Date: 20090521
  Receipt Date: 20090513
  Transmission Date: 20091009
  Serious: Yes (Death, Hospitalization)
  Sender: FDA-Public Use
  Company Number: BR-AVENTIS-200915074GDDC

PATIENT
  Age: 64 Year
  Sex: Female
  Weight: 76 kg

DRUGS (5)
  1. LANTUS [Suspect]
     Route: 058
  2. LANTUS [Suspect]
     Route: 058
     Dates: end: 20090401
  3. OPTIPEN (INSULIN PUMP) [Suspect]
     Route: 058
     Dates: end: 20090401
  4. ANTIHYPERTENSIVES [Concomitant]
     Indication: HYPERTENSION
  5. UNKNOWN DRUG [Concomitant]

REACTIONS (4)
  - DIABETES MELLITUS INADEQUATE CONTROL [None]
  - SEPTIC SHOCK [None]
  - SICKLE CELL ANAEMIA [None]
  - URINARY TRACT INFECTION [None]
